FAERS Safety Report 13761398 (Version 4)
Quarter: 2017Q3

REPORT INFORMATION
  Report Type: Spontaneous
  Country: US (occurrence: US)
  Receive Date: 20170717
  Receipt Date: 20170816
  Transmission Date: 20171127
  Serious: Yes (Other)
  Sender: FDA-Public Use
  Company Number: US-SHIRE-US201714720

PATIENT
  Age: 6 Year
  Sex: Male
  Weight: 31.9 kg

DRUGS (5)
  1. ADYNOVATE [Suspect]
     Active Substance: ANTIHEMOPHILIC FACTOR, HUMAN RECOMBINANT
     Indication: HAEMORRHAGE
  2. ADVATE [Suspect]
     Active Substance: ANTIHEMOPHILIC FACTOR, HUMAN RECOMBINANT
     Indication: PROPHYLAXIS
  3. ADVATE [Suspect]
     Active Substance: ANTIHEMOPHILIC FACTOR, HUMAN RECOMBINANT
     Indication: HAEMORRHAGE
     Dosage: 1595 IU, QOD, PROPHYLACTICALLY
     Route: 042
     Dates: start: 20170516
  4. ADYNOVATE [Suspect]
     Active Substance: ANTIHEMOPHILIC FACTOR, HUMAN RECOMBINANT
     Indication: PRODUCT USED FOR UNKNOWN INDICATION
     Dosage: 1156 UNITS, 2X A WEEK
     Route: 042
     Dates: start: 20170214, end: 20170511
  5. ADVATE [Suspect]
     Active Substance: ANTIHEMOPHILIC FACTOR, HUMAN RECOMBINANT
     Indication: PRODUCT USED FOR UNKNOWN INDICATION
     Dosage: USED ON DEMAND
     Route: 042

REACTIONS (2)
  - Haemorrhage [Unknown]
  - Factor VIII inhibition [Not Recovered/Not Resolved]

NARRATIVE: CASE EVENT DATE: 2017
